FAERS Safety Report 14315808 (Version 5)
Quarter: 2019Q1

REPORT INFORMATION
  Report Type: Spontaneous
  Country: ES (occurrence: ES)
  Receive Date: 20171221
  Receipt Date: 20190313
  Transmission Date: 20190417
  Serious: Yes (Life-Threatening, Other)
  Sender: FDA-Public Use
  Company Number: ES-MYLANLABS-2017M1080015

PATIENT
  Age: 5 Year
  Sex: Male

DRUGS (3)
  1. DEXAMETHASONE. [Suspect]
     Active Substance: DEXAMETHASONE
     Indication: ENDOTRACHEAL INTUBATION
     Dosage: 1.8 MG, ADMINISTERED DURING SURGERY ON DAY 14
     Route: 065
  2. DEXAMETHASONE. [Suspect]
     Active Substance: DEXAMETHASONE
     Indication: ACUTE KIDNEY INJURY
  3. RASBURICASE [Concomitant]
     Active Substance: RASBURICASE
     Indication: ACUTE KIDNEY INJURY
     Dosage: UNK

REACTIONS (2)
  - Ventricular tachycardia [Recovered/Resolved]
  - Hyperkalaemia [Recovered/Resolved]
